FAERS Safety Report 5255522-0 (Version None)
Quarter: 2007Q1

REPORT INFORMATION
  Report Type: 
  Country: None (occurrence: None)
  Receive Date: 20070305
  Receipt Date: 20070224
  Transmission Date: 20070707
  Serious: Yes (Hospitalization)
  Sender: FDA-Public Use
  Company Number: DE-SHR-DE-2004-033454

PATIENT
  Age: 48 Year
  Sex: Female

DRUGS (3)
  1. BETASERON [Suspect]
     Route: 058
     Dates: start: 20041027, end: 20051101
  2. BETASERON [Suspect]
     Route: 058
     Dates: start: 20000101, end: 20041012
  3. VIOXX [Concomitant]
     Dosage: UNK, AS REQ'D
     Dates: start: 20000101

REACTIONS (5)
  - MULTIPLE SCLEROSIS RELAPSE [None]
  - MYALGIA [None]
  - MYOSITIS [None]
  - OEDEMA PERIPHERAL [None]
  - PAIN IN EXTREMITY [None]
